FAERS Safety Report 4504127-5 (Version None)
Quarter: 2004Q4

REPORT INFORMATION
  Report Type: 
  Country: None (occurrence: None)
  Receive Date: 20041115
  Receipt Date: 20041101
  Transmission Date: 20050328
  Serious: Yes (Death)
  Sender: FDA-Public Use
  Company Number: 2003UW16014

PATIENT
  Age: 21 Year
  Sex: Female
  Weight: 95.2554 kg

DRUGS (23)
  1. SEROQUEL [Suspect]
     Indication: BIPOLAR DISORDER
     Dates: start: 20010918
  2. SEROQUEL [Suspect]
     Indication: SCHIZOPHRENIA
     Dates: start: 20010918
  3. SEROQUEL [Suspect]
     Indication: BIPOLAR DISORDER
     Dosage: 175 MG DAILY
     Dates: start: 20011003, end: 20011012
  4. SEROQUEL [Suspect]
     Indication: SCHIZOPHRENIA
     Dosage: 175 MG DAILY
     Dates: start: 20011003, end: 20011012
  5. ZYPREXA [Suspect]
     Indication: BIPOLAR DISORDER
     Dosage: 7.5 MG DAILY PO
     Route: 048
     Dates: start: 20010901, end: 20011122
  6. ZYPREXA [Suspect]
     Indication: SCHIZOPHRENIA
     Dosage: 7.5 MG DAILY PO
     Route: 048
     Dates: start: 20010901, end: 20011122
  7. ZYPREXA [Suspect]
     Indication: BIPOLAR DISORDER
     Dosage: 15 MG DAILY PO
     Route: 048
     Dates: start: 20010902
  8. ZYPREXA [Suspect]
     Indication: SCHIZOPHRENIA
     Dosage: 15 MG DAILY PO
     Route: 048
     Dates: start: 20010902
  9. ZYPREXA [Suspect]
     Indication: BIPOLAR DISORDER
     Dosage: 10 MG HS
  10. ZYPREXA [Suspect]
     Indication: SCHIZOPHRENIA
     Dosage: 10 MG HS
  11. ZYPREXA [Suspect]
     Indication: BIPOLAR DISORDER
     Dosage: 3 DF QD
     Dates: start: 20010927
  12. ZYPREXA [Suspect]
     Indication: SCHIZOPHRENIA
     Dosage: 3 DF QD
     Dates: start: 20010927
  13. ATIVAN [Concomitant]
  14. VISTARIL [Concomitant]
  15. DEPO-PROVERA [Concomitant]
  16. NOT MATCH [Concomitant]
  17. ADVIL [Concomitant]
  18. AMBIEN [Concomitant]
  19. SEPTRA DS [Concomitant]
  20. METRONIDAZOLE [Concomitant]
  21. DOXYCYCLINE [Concomitant]
  22. TEMAZEPAM [Concomitant]
  23. ROXICET [Concomitant]

REACTIONS (17)
  - ABDOMINAL PAIN [None]
  - ABDOMINAL PAIN UPPER [None]
  - ASTHENIA [None]
  - BACK PAIN [None]
  - CARDIO-RESPIRATORY ARREST [None]
  - COMA [None]
  - CORONARY ARTERY DISEASE [None]
  - DIZZINESS [None]
  - DRUG LEVEL INCREASED [None]
  - HEADACHE [None]
  - HEPATIC STEATOSIS [None]
  - IMPAIRED WORK ABILITY [None]
  - METABOLIC DISORDER [None]
  - PANCREATIC NECROSIS [None]
  - PANCREATITIS HAEMORRHAGIC [None]
  - PARACENTESIS EYE ABNORMAL [None]
  - VOMITING [None]
